FAERS Safety Report 5394615-4 (Version None)
Quarter: 2007Q3

REPORT INFORMATION
  Report Type: 
  Country: None (occurrence: None)
  Receive Date: 20070723
  Receipt Date: 20070711
  Transmission Date: 20080115
  Serious: Yes (Other)
  Sender: FDA-Public Use
  Company Number: GB-PFIZER INC-2007059120

PATIENT

DRUGS (2)
  1. CHAMPIX [Suspect]
     Route: 048
  2. ANTIDEPRESSANTS [Concomitant]

REACTIONS (4)
  - APATHY [None]
  - FEELING ABNORMAL [None]
  - HEADACHE [None]
  - HOT FLUSH [None]
